FAERS Safety Report 21637027 (Version 2)
Quarter: 2023Q1

REPORT INFORMATION
  Report Type: Spontaneous
  Country: US (occurrence: US)
  Receive Date: 20221124
  Receipt Date: 20230314
  Transmission Date: 20230418
  Serious: Yes (Other)
  Sender: FDA-Public Use
  Company Number: US-ORGANON-O2211USA001877

PATIENT
  Sex: Female

DRUGS (1)
  1. NEXPLANON [Suspect]
     Active Substance: ETONOGESTREL
     Dosage: 1 IMPLANT OF 68 MG ONCE
     Route: 059
     Dates: start: 20220909, end: 20221104

REACTIONS (5)
  - Device expulsion [Recovered/Resolved]
  - Infection [Unknown]
  - Keloid scar [Recovered/Resolved with Sequelae]
  - Implant site discharge [Unknown]
  - Device placement issue [Recovered/Resolved]

NARRATIVE: CASE EVENT DATE: 20220101
